FAERS Safety Report 25227026 (Version 1)
Quarter: 2025Q2

REPORT INFORMATION
  Report Type: Spontaneous
  Country: US (occurrence: None)
  Receive Date: 20250421
  Receipt Date: 20250421
  Transmission Date: 20250717
  Serious: Yes (Hospitalization)
  Sender: FDA-CTU
  Company Number: None

PATIENT
  Age: 75 Year
  Sex: Female
  Weight: 73.94 kg

DRUGS (1)
  1. CONTRAVE [Suspect]
     Active Substance: BUPROPION HYDROCHLORIDE\NALTREXONE HYDROCHLORIDE
     Dosage: OTHER FREQUENCY : 2 AM 1 PM;?
     Route: 048

REACTIONS (4)
  - Balance disorder [None]
  - Fall [None]
  - Vertigo [None]
  - Motion sickness [None]

NARRATIVE: CASE EVENT DATE: 20250417
